FAERS Safety Report 24556506 (Version 1)
Quarter: 2024Q4

REPORT INFORMATION
  Report Type: Spontaneous
  Country: US (occurrence: None)
  Receive Date: 20241027
  Receipt Date: 20241027
  Transmission Date: 20250114
  Serious: Yes (Other)
  Sender: Public
  Company Number: None

PATIENT
  Age: 34 Year
  Sex: Female
  Weight: 81 kg

DRUGS (7)
  1. EMGALITY [Suspect]
     Active Substance: GALCANEZUMAB-GNLM
     Indication: Migraine
     Dosage: OTHER QUANTITY : 1 SYRINGE;?OTHER FREQUENCY : 1/MONTH;?OTHER ROUTE : SUBCUTANEOUS INJECTION;?
     Route: 050
     Dates: start: 20240501, end: 20241026
  2. METOPROLOL [Concomitant]
  3. ADDERALL [Concomitant]
  4. Zofran [Concomitant]
  5. FLEXERIL [Concomitant]
     Active Substance: CYCLOBENZAPRINE HYDROCHLORIDE
  6. NARATRIPTAN [Concomitant]
     Active Substance: NARATRIPTAN HYDROCHLORIDE
  7. MELATONIN [Concomitant]
     Active Substance: MELATONIN

REACTIONS (6)
  - Hypoaesthesia [None]
  - Injection site bruising [None]
  - Influenza like illness [None]
  - Migraine [None]
  - Injection site reaction [None]
  - Injection site hypoaesthesia [None]

NARRATIVE: CASE EVENT DATE: 20241026
